FAERS Safety Report 21414090 (Version 1)
Quarter: 2022Q4

REPORT INFORMATION
  Report Type: Spontaneous
  Country: US (occurrence: US)
  Receive Date: 20221006
  Receipt Date: 20221006
  Transmission Date: 20230113
  Serious: No
  Sender: FDA-Public Use
  Company Number: US-ALLERGAN-2225629US

PATIENT
  Sex: Female

DRUGS (3)
  1. QULIPTA [Suspect]
     Active Substance: ATOGEPANT
     Indication: Product used for unknown indication
     Dosage: UNK
  2. QULIPTA [Suspect]
     Active Substance: ATOGEPANT
     Dosage: UNK
  3. VYEPTI [Concomitant]
     Active Substance: EPTINEZUMAB-JJMR

REACTIONS (3)
  - Irritable bowel syndrome [Unknown]
  - Constipation [Recovering/Resolving]
  - Headache [Unknown]
